FAERS Safety Report 17313279 (Version 7)
Quarter: 2020Q2

REPORT INFORMATION
  Report Type: Report from Study
  Country: None (occurrence: GB)
  Receive Date: 20200124
  Receipt Date: 20200615
  Transmission Date: 20200713
  Serious: Yes (Hospitalization)
  Sender: FDA-Public Use
  Company Number: GB-ABBVIE-20K-167-3244287-00

PATIENT
  Age: 59 Year
  Sex: Male

DRUGS (2)
  1. DUODOPA [Suspect]
     Active Substance: CARBIDOPA\LEVODOPA
     Indication: PARKINSON^S DISEASE
     Dosage: 5MG/1ML??20MG/1ML??100ML CASSETTE DAILY
     Route: 050
  2. DUODOPA [Suspect]
     Active Substance: CARBIDOPA\LEVODOPA
     Dosage: CASSETTE
     Route: 050
     Dates: start: 2020

REACTIONS (11)
  - Face injury [Unknown]
  - Tremor [Not Recovered/Not Resolved]
  - Pyrexia [Unknown]
  - Mobility decreased [Unknown]
  - Confusional state [Unknown]
  - Urinary tract infection [Unknown]
  - Lower respiratory tract infection [Recovered/Resolved]
  - Dyskinesia [Unknown]
  - Upper limb fracture [Unknown]
  - Fall [Unknown]
  - Lower respiratory tract infection [Unknown]

NARRATIVE: CASE EVENT DATE: 202001
